FAERS Safety Report 25621041 (Version 3)
Quarter: 2025Q3

REPORT INFORMATION
  Report Type: Spontaneous
  Country: JP (occurrence: JP)
  Receive Date: 20250730
  Receipt Date: 20250908
  Transmission Date: 20251021
  Serious: Yes (Death)
  Sender: BAUSCH AND LOMB
  Company Number: JP-BAUSCH-BH-2025-015320

PATIENT
  Age: 66 Year
  Sex: Male
  Weight: 60 kg

DRUGS (16)
  1. DEXAMETHASONE [Suspect]
     Active Substance: DEXAMETHASONE
     Indication: COVID-19 pneumonia
     Dosage: FROM DAY 25 TO 32
     Route: 065
  2. METHYLPREDNISOLONE [Suspect]
     Active Substance: METHYLPREDNISOLONE
     Indication: COVID-19 pneumonia
     Dosage: PULSE FROM DAY 32 TO 35 AND FROM 44 TO 47
     Route: 065
  3. METHYLPREDNISOLONE [Suspect]
     Active Substance: METHYLPREDNISOLONE
     Route: 065
  4. METHYLPREDNISOLONE [Suspect]
     Active Substance: METHYLPREDNISOLONE
     Route: 065
  5. METHYLPREDNISOLONE [Suspect]
     Active Substance: METHYLPREDNISOLONE
     Route: 065
  6. PREDNISOLONE SODIUM SUCCINATE [Suspect]
     Active Substance: PREDNISOLONE SODIUM SUCCINATE
     Indication: COVID-19 pneumonia
     Dosage: FROM DAY 35 TO 40
     Route: 065
  7. PREDNISOLONE SODIUM SUCCINATE [Suspect]
     Active Substance: PREDNISOLONE SODIUM SUCCINATE
     Route: 065
  8. PREDNISOLONE SODIUM SUCCINATE [Suspect]
     Active Substance: PREDNISOLONE SODIUM SUCCINATE
     Route: 065
  9. PREDNISOLONE [Suspect]
     Active Substance: PREDNISOLONE
     Indication: COVID-19 pneumonia
     Dosage: FROM DAY 40 TO DAY 47
     Route: 065
  10. REMDESIVIR [Concomitant]
     Active Substance: REMDESIVIR
     Indication: COVID-19 pneumonia
  11. REMDESIVIR [Concomitant]
     Active Substance: REMDESIVIR
  12. NIRMATRELVIR\RITONAVIR [Concomitant]
     Active Substance: NIRMATRELVIR\RITONAVIR
     Indication: COVID-19 pneumonia
  13. BARICITINIB [Concomitant]
     Active Substance: BARICITINIB
     Indication: COVID-19 pneumonia
  14. CILGAVIMAB\TIXAGEVIMAB [Concomitant]
     Active Substance: CILGAVIMAB\TIXAGEVIMAB
     Indication: Follicular lymphoma recurrent
  15. OBINUTUZUMAB [Concomitant]
     Active Substance: OBINUTUZUMAB
     Indication: Follicular lymphoma recurrent
  16. BENDAMUSTINE [Concomitant]
     Active Substance: BENDAMUSTINE
     Indication: Follicular lymphoma recurrent

REACTIONS (6)
  - Pneumonia bacterial [Fatal]
  - Pneumonia fungal [Fatal]
  - Pulmonary thrombosis [Fatal]
  - Disseminated cytomegaloviral infection [Fatal]
  - Renal vascular thrombosis [Fatal]
  - Diffuse alveolar damage [Fatal]
